FAERS Safety Report 5588609-3 (Version None)
Quarter: 2008Q1

REPORT INFORMATION
  Report Type: 
  Country: None (occurrence: None)
  Receive Date: 20080111
  Receipt Date: 20080104
  Transmission Date: 20080703
  Serious: Yes (Death, Life-Threatening, Hospitalization)
  Sender: FDA-Public Use
  Company Number: US-PFIZER INC-2007090833

PATIENT
  Sex: Male
  Weight: 85 kg

DRUGS (15)
  1. MARAVIROC [Suspect]
     Indication: HIV TEST POSITIVE
     Route: 048
     Dates: start: 20070627, end: 20071222
  2. TRUVADA [Concomitant]
     Dosage: TEXT:1 TABLET-FREQ:DAILY
     Route: 048
  3. VALTREX [Concomitant]
     Route: 048
     Dates: start: 20030401
  4. TAMSULOSIN HCL [Concomitant]
     Route: 048
     Dates: start: 20060116
  5. LYRICA [Concomitant]
     Route: 048
     Dates: start: 20060627
  6. CLARITIN [Concomitant]
     Route: 048
     Dates: start: 20060913
  7. FUZEON [Concomitant]
     Route: 058
     Dates: start: 20060130
  8. NORVIR [Concomitant]
     Route: 048
     Dates: start: 20060130
  9. INVIRASE [Concomitant]
     Route: 048
     Dates: start: 20060130
  10. NEXIUM [Concomitant]
     Route: 048
  11. RALTEGRAVIR [Concomitant]
     Route: 048
  12. TERAZOSIN HCL [Concomitant]
  13. MULTIVITAMINS WITH MINERALS [Concomitant]
     Dosage: TEXT:1 TAB-FREQ:DAILY
     Route: 048
  14. EPOGEN [Concomitant]
     Route: 058
  15. FERROUS SULFATE [Concomitant]
     Route: 048

REACTIONS (1)
  - T-CELL TYPE ACUTE LEUKAEMIA [None]
